FAERS Safety Report 6704101-4 (Version None)
Quarter: 2010Q2

REPORT INFORMATION
  Report Type: 
  Country: None (occurrence: None)
  Receive Date: 20100430
  Receipt Date: 20100427
  Transmission Date: 20101027
  Serious: Yes (Hospitalization)
  Sender: FDA-Public Use
  Company Number: GB-AMGEN-UK408654

PATIENT
  Sex: Female

DRUGS (3)
  1. NEULASTA [Suspect]
     Indication: CHEMOTHERAPY
  2. CAPECITABINE [Suspect]
     Route: 048
     Dates: start: 20061031
  3. EPIRUBICIN [Suspect]

REACTIONS (1)
  - ERYTHEMA NODOSUM [None]
